FAERS Safety Report 6334842-2 (Version None)
Quarter: 2009Q3

REPORT INFORMATION
  Report Type: 
  Country: None (occurrence: None)
  Receive Date: 20090831
  Receipt Date: 20090825
  Transmission Date: 20100115
  Serious: Yes (Other)
  Sender: FDA-Public Use
  Company Number: PHHY2009HR36508

PATIENT
  Age: 74 Year
  Sex: Female

DRUGS (1)
  1. DICLOFENAC [Suspect]
     Dosage: 50 MG, UNK
     Route: 048

REACTIONS (5)
  - CHEST PAIN [None]
  - DYSPHAGIA [None]
  - EROSIVE OESOPHAGITIS [None]
  - ODYNOPHAGIA [None]
  - OESOPHAGEAL ULCER [None]
